FAERS Safety Report 4450310-7 (Version None)
Quarter: 2004Q3

REPORT INFORMATION
  Report Type: 
  Country: None (occurrence: None)
  Receive Date: 20040914
  Receipt Date: 20040831
  Transmission Date: 20050211
  Serious: Yes (Death, Hospitalization)
  Sender: FDA-Public Use
  Company Number: 04P-167-0272343-00

PATIENT
  Age: 32 Year
  Sex: Female

DRUGS (4)
  1. NORVIR [Suspect]
  2. LAMIVUDINE [Suspect]
  3. ZIDOVUDINE [Suspect]
  4. SAQUINAVIR [Suspect]

REACTIONS (16)
  - ABNORMAL BEHAVIOUR [None]
  - CIRCULATORY COLLAPSE [None]
  - COMMUNICATION DISORDER [None]
  - CSF TEST ABNORMAL [None]
  - DNA ANTIBODY [None]
  - ENCEPHALITIS [None]
  - ENCEPHALOPATHY [None]
  - HEADACHE [None]
  - HIV INFECTION [None]
  - HOSTILITY [None]
  - HYPERPLASIA [None]
  - IMMUNE RECONSTITUTION SYNDROME [None]
  - LUMBAR PUNCTURE ABNORMAL [None]
  - LYMPHOCYTOSIS [None]
  - MOOD ALTERED [None]
  - SOCIAL AVOIDANT BEHAVIOUR [None]
